FAERS Safety Report 9337686 (Version 2)
Quarter: 2013Q4

REPORT INFORMATION
  Report Type: Spontaneous
  Country: US (occurrence: US)
  Receive Date: 20130607
  Receipt Date: 20131025
  Transmission Date: 20140711
  Serious: Yes (Death, Hospitalization)
  Sender: FDA-Public Use
  Company Number: US-B.I. PHARMACEUTICALS,INC./RIDGEFIELD-2013-BI-15788BP

PATIENT
  Age: 75 Year
  Sex: Male
  Weight: 95.71 kg

DRUGS (11)
  1. PRADAXA [Suspect]
     Indication: ATRIAL FIBRILLATION
     Dates: start: 20111025, end: 20120225
  2. PRADAXA [Suspect]
     Indication: THROMBOSIS PROPHYLAXIS
  3. WARFARIN [Suspect]
     Indication: THROMBOSIS PROPHYLAXIS
     Dosage: 5 MG
     Dates: start: 20120228, end: 20120309
  4. MELOXICAM [Concomitant]
  5. VOLTAREN [Concomitant]
  6. AMLODIPINE [Concomitant]
  7. ATENOLOL [Concomitant]
  8. AMLODIPINE [Concomitant]
  9. LISINOPRIL [Concomitant]
  10. ATORVASTATIN [Concomitant]
  11. GLIMEPIRIDE [Concomitant]

REACTIONS (7)
  - Upper gastrointestinal haemorrhage [Fatal]
  - Haemorrhagic anaemia [Unknown]
  - Glomerulonephritis [Unknown]
  - Coagulopathy [Unknown]
  - Haematuria [Unknown]
  - Anaemia [Unknown]
  - Activated partial thromboplastin time prolonged [Unknown]
